FAERS Safety Report 21772583 (Version 4)
Quarter: 2023Q2

REPORT INFORMATION
  Report Type: Report from Study
  Country: CA (occurrence: CA)
  Receive Date: 20221223
  Receipt Date: 20230502
  Transmission Date: 20230721
  Serious: Yes (Death)
  Sender: FDA-Public Use
  Company Number: CA-002147023-NVSC2022CA243522

PATIENT
  Age: 56 Year
  Sex: Female

DRUGS (4)
  1. TAFINLAR [Suspect]
     Active Substance: DABRAFENIB MESYLATE
     Indication: Metastatic malignant melanoma
     Dosage: 150 MG, BID
     Route: 048
     Dates: start: 20221018
  2. TAFINLAR [Suspect]
     Active Substance: DABRAFENIB MESYLATE
     Indication: BRAF V600E mutation positive
  3. MEKINIST [Suspect]
     Active Substance: TRAMETINIB DIMETHYL SULFOXIDE
     Indication: Metastatic malignant melanoma
     Dosage: 2 MG, QD
     Route: 048
     Dates: start: 20221018
  4. MEKINIST [Suspect]
     Active Substance: TRAMETINIB DIMETHYL SULFOXIDE
     Indication: BRAF V600E mutation positive

REACTIONS (9)
  - Metastatic malignant melanoma [Fatal]
  - Malignant neoplasm progression [Fatal]
  - Agitation [Unknown]
  - Influenza [Unknown]
  - Depression [Unknown]
  - Palpitations [Recovered/Resolved]
  - Myalgia [Recovered/Resolved]
  - Peripheral swelling [Unknown]
  - Fatigue [Unknown]

NARRATIVE: CASE EVENT DATE: 20221001
